FAERS Safety Report 17367034 (Version 1)
Quarter: 2020Q1

REPORT INFORMATION
  Report Type: Spontaneous
  Country: GB (occurrence: GB)
  Receive Date: 20200204
  Receipt Date: 20200204
  Transmission Date: 20200409
  Serious: Yes (Other)
  Sender: FDA-Public Use
  Company Number: GB-PFIZER INC-2020040484

PATIENT
  Age: 56 Year
  Sex: Female

DRUGS (8)
  1. AVASTIN [Suspect]
     Active Substance: BEVACIZUMAB
     Indication: COLON CANCER
     Dosage: 295 MG, (5MG/KG), FOR 12 CYCLES
     Route: 042
     Dates: start: 2019
  2. FLUOROURACIL. [Suspect]
     Active Substance: FLUOROURACIL
     Indication: COLON CANCER
     Dosage: 2475 MG, UNK (1536MG/M^2, FOR 12 CYCLES (INTERVAL PERIOD 14 DAYS))
     Route: 042
     Dates: start: 2019
  3. DEXAMETHASONE. [Concomitant]
     Active Substance: DEXAMETHASONE
     Dosage: 8 MG, UNK
  4. ATROPINE. [Concomitant]
     Active Substance: ATROPINE
     Dosage: UNK
  5. IRINOTECAN HCL [Suspect]
     Active Substance: IRINOTECAN HYDROCHLORIDE
     Indication: COLON CANCER
     Dosage: 186 MG, UNK, FOR 12 CYCLES (INTERVAL PERIOD 14 DAYS)
     Route: 042
     Dates: start: 2019
  6. APREPITANT. [Concomitant]
     Active Substance: APREPITANT
     Dosage: UNK
  7. GRANISETRON [Concomitant]
     Active Substance: GRANISETRON
     Dosage: UNK
  8. CALCIUM FOLINATE [Suspect]
     Active Substance: LEUCOVORIN CALCIUM
     Indication: COLON CANCER
     Dosage: 412.5 MG, UNK, 256MG/M2 (FOR 12 CYCLES)
     Route: 042
     Dates: start: 2019

REACTIONS (7)
  - Constipation [Not Recovered/Not Resolved]
  - Decreased appetite [Not Recovered/Not Resolved]
  - Fatigue [Not Recovered/Not Resolved]
  - Taste disorder [Not Recovered/Not Resolved]
  - Neuropathy peripheral [Not Recovered/Not Resolved]
  - Nausea [Not Recovered/Not Resolved]
  - Headache [Not Recovered/Not Resolved]
